FAERS Safety Report 25135822 (Version 1)
Quarter: 2025Q1

REPORT INFORMATION
  Report Type: Spontaneous
  Country: US (occurrence: US)
  Receive Date: 20250328
  Receipt Date: 20250328
  Transmission Date: 20250409
  Serious: No
  Sender: SANOFI AVENTIS
  Company Number: US-SA-2025SA089358

PATIENT
  Age: 8 Year
  Sex: Male

DRUGS (4)
  1. DUPIXENT [Suspect]
     Active Substance: DUPILUMAB
     Indication: Dermatitis atopic
     Dosage: 300 MG, Q4W
     Route: 058
  2. DUPIXENT [Suspect]
     Active Substance: DUPILUMAB
     Indication: Eczema
  3. DUPIXENT [Suspect]
     Active Substance: DUPILUMAB
     Indication: Eosinophilic oesophagitis
  4. GABAPENTIN [Concomitant]
     Active Substance: GABAPENTIN

REACTIONS (7)
  - Sleep disorder [Unknown]
  - Dry skin [Unknown]
  - Memory impairment [Unknown]
  - Eczema [Unknown]
  - Therapeutic response decreased [Unknown]
  - Eosinophilic oesophagitis [Unknown]
  - Product dose omission in error [Unknown]
